FAERS Safety Report 8037745-0 (Version None)
Quarter: 2012Q1

REPORT INFORMATION
  Report Type: 
  Country: None (occurrence: None)
  Receive Date: 20120111
  Receipt Date: 20111228
  Transmission Date: 20120608
  Serious: Yes (Hospitalization)
  Sender: FDA-Public Use
  Company Number: CA-SANOFI-AVENTIS-2011SA061131

PATIENT
  Age: 58 Year
  Sex: Female

DRUGS (11)
  1. PLAVIX [Suspect]
  2. CICLESONIDE [Concomitant]
  3. NOVORAPID [Concomitant]
  4. ADALAT [Concomitant]
  5. SYNTHROID [Concomitant]
  6. ALBUTEROL SULFATE AUTOHALER [Concomitant]
  7. CLONAZEPAM [Concomitant]
  8. SINGULAIR [Concomitant]
  9. LANTUS [Concomitant]
  10. ORENCIA [Suspect]
     Indication: RHEUMATOID ARTHRITIS
     Route: 042
     Dates: start: 20080904, end: 20111228
  11. RAMIPRIL [Concomitant]

REACTIONS (4)
  - FATIGUE [None]
  - EPISTAXIS [None]
  - BLOOD PRESSURE INCREASED [None]
  - METABOLIC ENCEPHALOPATHY [None]
